FAERS Safety Report 16006792 (Version 1)
Quarter: 2019Q1

REPORT INFORMATION
  Report Type: Spontaneous
  Country: IT (occurrence: IT)
  Receive Date: 20190226
  Receipt Date: 20190226
  Transmission Date: 20190418
  Serious: Yes (Hospitalization)
  Sender: FDA-Public Use
  Company Number: IT-MYLANLABS-2019M1016293

PATIENT
  Age: 78 Year
  Sex: Male

DRUGS (8)
  1. LEVOFLOXACIN. [Suspect]
     Active Substance: LEVOFLOXACIN
     Indication: PNEUMONIA
     Dosage: 500 MG,QD
     Route: 042
     Dates: start: 20120310, end: 20120320
  2. SEROQUEL [Concomitant]
     Active Substance: QUETIAPINE FUMARATE
     Dosage: UNK
  3. REMERON [Concomitant]
     Active Substance: MIRTAZAPINE
     Dosage: UNK
  4. FIDATO [Suspect]
     Active Substance: CEFTRIAXONE SODIUM
     Indication: PNEUMONIA
     Dosage: 1 G,QD
     Route: 042
     Dates: start: 20120316, end: 20120320
  5. LANSOX [Concomitant]
     Active Substance: LANSOPRAZOLE
     Dosage: UNK
  6. CEFTRIAXONE. [Suspect]
     Active Substance: CEFTRIAXONE
     Indication: PRODUCT USED FOR UNKNOWN INDICATION
     Dosage: UNK
  7. FUROSEMIDE. [Concomitant]
     Active Substance: FUROSEMIDE
     Dosage: UNK
  8. CLEXANE [Concomitant]
     Active Substance: ENOXAPARIN SODIUM
     Dosage: UNK

REACTIONS (4)
  - Pyrexia [Unknown]
  - Diarrhoea [Recovering/Resolving]
  - Infection [Recovering/Resolving]
  - Vomiting [Recovering/Resolving]

NARRATIVE: CASE EVENT DATE: 20120320
